FAERS Safety Report 18494803 (Version 2)
Quarter: 2020Q4

REPORT INFORMATION
  Report Type: Spontaneous
  Country: US (occurrence: US)
  Receive Date: 20201112
  Receipt Date: 20201228
  Transmission Date: 20210114
  Serious: No
  Sender: FDA-Public Use
  Company Number: US-TAKEDA-US202033564

PATIENT
  Sex: Female
  Weight: 61.22 kg

DRUGS (3)
  1. PRIVIGEN [Concomitant]
     Active Substance: HUMAN IMMUNOGLOBULIN G
     Indication: PRODUCT USED FOR UNKNOWN INDICATION
  2. FIRAZYR [Suspect]
     Active Substance: ICATIBANT ACETATE
     Indication: IMMUNE SYSTEM DISORDER
     Dosage: 30 MILLIGRAM, AS REQUIRED
     Route: 058
     Dates: start: 20200911
  3. FIRAZYR [Suspect]
     Active Substance: ICATIBANT ACETATE
     Indication: IMMUNE SYSTEM DISORDER
     Dosage: 30 MILLIGRAM, AS REQUIRED
     Route: 058
     Dates: start: 20200911

REACTIONS (4)
  - Injection site haemorrhage [Unknown]
  - Product use in unapproved indication [Unknown]
  - Injection site bruising [Unknown]
  - Hereditary angioedema [Unknown]
